FAERS Safety Report 5422187-4 (Version None)
Quarter: 2007Q3

REPORT INFORMATION
  Report Type: 
  Country: None (occurrence: None)
  Receive Date: 20070822
  Receipt Date: 20070813
  Transmission Date: 20080115
  Serious: Yes (Death)
  Sender: FDA-Public Use
  Company Number: DE-GENENTECH-246155

PATIENT
  Sex: Female
  Weight: 65 kg

DRUGS (14)
  1. RITUXAN [Suspect]
     Indication: VASCULITIS
     Dosage: 1000 MG, UNK
     Dates: start: 20070524, end: 20070524
  2. PERFALGAN [Concomitant]
     Indication: PROPHYLAXIS
     Dates: start: 20070514, end: 20070514
  3. FENISTIL [Concomitant]
     Indication: PROPHYLAXIS
     Dates: start: 20070514, end: 20070514
  4. TAGAMET [Concomitant]
     Indication: DRUG USE FOR UNKNOWN INDICATION
     Dates: start: 20070514, end: 20070514
  5. SELECTOL [Concomitant]
     Indication: TACHYARRHYTHMIA
  6. MEDICATION (UNK INGREDIENT) [Concomitant]
     Indication: COLITIS
     Dosage: 6 UNK, QD
     Dates: start: 20070521
  7. SALOFALK [Concomitant]
     Indication: COLITIS
     Dosage: 1000 MG, TID
     Dates: start: 20070510, end: 20070524
  8. NEXIUM [Concomitant]
     Indication: REFLUX GASTRITIS
     Dosage: 40 UNK, UNK
  9. CALCILAC [Concomitant]
     Indication: OSTEOPOROSIS
     Dosage: UNK, BID
  10. DECORTIN H [Concomitant]
     Indication: ARTERITIS
     Dosage: 15 MG, UNK
     Dates: end: 20070519
  11. DECORTIN H [Concomitant]
     Dosage: 100 MG, UNK
     Dates: end: 20070519
  12. ASPIRIN [Concomitant]
     Indication: DRUG USE FOR UNKNOWN INDICATION
     Dosage: UNK, QD
  13. FUROSEMIDE [Concomitant]
     Indication: CARDIAC FAILURE
     Dosage: 40 UNK, BID
  14. GABAPENTIN [Concomitant]
     Indication: RESTLESS LEGS SYNDROME
     Dosage: 100 UNK, QD

REACTIONS (3)
  - HAEMORRHAGE [None]
  - LIVER FUNCTION TEST ABNORMAL [None]
  - THROMBOCYTOPENIA [None]
